FAERS Safety Report 11173056 (Version 3)
Quarter: 2015Q3

REPORT INFORMATION
  Report Type: Report from Study
  Country: FR (occurrence: FR)
  Receive Date: 20150608
  Receipt Date: 20150710
  Transmission Date: 20151125
  Serious: Yes (Other)
  Sender: FDA-Public Use
  Company Number: FR-MERCK-1506FRA003252

PATIENT
  Age: 70 Year
  Sex: Male

DRUGS (15)
  1. EZETROL [Concomitant]
     Active Substance: EZETIMIBE
     Indication: DYSLIPIDAEMIA
     Dosage: 10 MG, QD
     Route: 048
     Dates: start: 201001
  2. FORADIL [Concomitant]
     Active Substance: FORMOTEROL FUMARATE
     Indication: CHRONIC OBSTRUCTIVE PULMONARY DISEASE
     Dosage: 12 MICROGRAM, BID
     Route: 055
     Dates: start: 201002
  3. PEMBROLIZUMAB. [Suspect]
     Active Substance: PEMBROLIZUMAB
     Dosage: 10 MG/KG, Q3W
     Route: 042
     Dates: start: 20141224
  4. ALLOPURINOL. [Concomitant]
     Active Substance: ALLOPURINOL
     Indication: PROPHYLAXIS
     Dosage: 200 MG, QD
     Route: 048
     Dates: start: 201001
  5. KARDEGIC [Concomitant]
     Active Substance: ASPIRIN LYSINE
     Indication: ISCHAEMIC HEART DISEASE PROPHYLAXIS
     Dosage: 75 MG, QD
     Route: 048
     Dates: start: 198801
  6. LEVOTHYROX [Concomitant]
     Active Substance: LEVOTHYROXINE
     Indication: THYROIDECTOMY
     Dosage: 100 MICROGRAM, QD
     Route: 048
     Dates: start: 200901
  7. PLAVIX [Concomitant]
     Active Substance: CLOPIDOGREL BISULFATE
     Indication: ISCHAEMIC HEART DISEASE PROPHYLAXIS
     Dosage: 75 MG, QD
     Route: 048
     Dates: start: 198801
  8. MIFLONIL [Concomitant]
     Active Substance: BUDESONIDE
     Indication: CHRONIC OBSTRUCTIVE PULMONARY DISEASE
     Dosage: 200 MICROGRAM, BID
     Route: 055
     Dates: start: 201002
  9. PEMBROLIZUMAB. [Suspect]
     Active Substance: PEMBROLIZUMAB
     Indication: NON-SMALL CELL LUNG CANCER
     Dosage: 10 MG/KG, Q3W
     Route: 042
     Dates: start: 20141201, end: 20141201
  10. TAHOR [Concomitant]
     Active Substance: ATORVASTATIN CALCIUM
     Indication: DYSLIPIDAEMIA
     Dosage: 40 MG, QD
     Route: 048
     Dates: start: 201001
  11. LASILIX [Concomitant]
     Active Substance: FUROSEMIDE
     Indication: ISCHAEMIC HEART DISEASE PROPHYLAXIS
     Dosage: 20 MG, QD
     Route: 048
     Dates: start: 198801
  12. XGEVA [Concomitant]
     Active Substance: DENOSUMAB
     Indication: METASTASES TO BONE
     Dosage: 120 MG, QM
     Route: 058
     Dates: start: 201408
  13. ATENOLOL. [Concomitant]
     Active Substance: ATENOLOL
     Indication: PROPHYLAXIS
     Dosage: 50 MG, QD
     Route: 048
     Dates: start: 198801
  14. LANGORAN [Concomitant]
     Indication: ISCHAEMIC HEART DISEASE PROPHYLAXIS
     Dosage: 20 MG, TID
     Route: 048
     Dates: start: 198801
  15. SPIRIVA [Concomitant]
     Active Substance: TIOTROPIUM BROMIDE MONOHYDRATE
     Indication: CHRONIC OBSTRUCTIVE PULMONARY DISEASE
     Dosage: 18 MICROGRAM, QD, FORMULATION: INHALANT
     Route: 055
     Dates: start: 201002

REACTIONS (1)
  - Eosinophilia [Not Recovered/Not Resolved]

NARRATIVE: CASE EVENT DATE: 20141223
